FAERS Safety Report 7298420-3 (Version None)
Quarter: 2011Q1

REPORT INFORMATION
  Report Type: 
  Country: None (occurrence: None)
  Receive Date: 20110204
  Receipt Date: 20110124
  Transmission Date: 20110831
  Serious: Yes (Other)
  Sender: FDA-Public Use
  Company Number: DSA_44852_2011

PATIENT
  Age: 25 Year
  Sex: Female

DRUGS (1)
  1. BUPROPION HCL [Suspect]
     Indication: SMOKING CESSATION THERAPY
     Dosage: DF ORAL
     Route: 048
     Dates: start: 20100507, end: 20100521

REACTIONS (2)
  - JAUNDICE CHOLESTATIC [None]
  - HEPATITIS [None]
